FAERS Safety Report 7224535-1 (Version None)
Quarter: 2011Q1

REPORT INFORMATION
  Report Type: 
  Country: None (occurrence: None)
  Receive Date: 20110113
  Receipt Date: 20101122
  Transmission Date: 20110831
  Serious: Yes (Hospitalization, Other)
  Sender: FDA-Public Use
  Company Number: US-BAYER-201029427NA

PATIENT
  Sex: Female
  Weight: 65 kg

DRUGS (19)
  1. YAZ [Suspect]
     Indication: ORAL CONTRACEPTION
     Route: 048
     Dates: start: 20060807, end: 20070611
  2. INTRAUTERINE CONTRACEPTIVE DEVICE [Concomitant]
     Indication: CONTRACEPTION
  3. CEPHALEXIN [Concomitant]
  4. CITALOPRAM [Concomitant]
  5. OXYCODONE [Concomitant]
  6. IBUPROFEN [Concomitant]
  7. ETODOLAC [Concomitant]
  8. HYDROCODONE [Concomitant]
  9. YAZ [Suspect]
     Indication: MENSTRUATION IRREGULAR
  10. ERRIN [Concomitant]
  11. PREDNISONE [Concomitant]
     Dates: start: 20070601
  12. ZITHROMAX [Concomitant]
     Dates: start: 20070601
  13. SKELAXIN [Concomitant]
  14. SERTRALINE HYDROCHLORIDE [Concomitant]
  15. VICODIN [Concomitant]
     Dates: start: 20070601
  16. METHYLPREDNISOLONE ACETATE [Concomitant]
  17. FLUOXETINE [Concomitant]
  18. UNCODEABLE ^UNKNOWN MANUFACTURER^ [Concomitant]
  19. MELOXICAM [Concomitant]

REACTIONS (5)
  - PULMONARY INFARCTION [None]
  - PULMONARY EMBOLISM [None]
  - DYSPNOEA [None]
  - PNEUMONIA [None]
  - PLEURITIC PAIN [None]
